FAERS Safety Report 8065789-1 (Version None)
Quarter: 2012Q1

REPORT INFORMATION
  Report Type: 
  Country: None (occurrence: None)
  Receive Date: 20120124
  Receipt Date: 20120113
  Transmission Date: 20120608
  Serious: Yes (Hospitalization)
  Sender: FDA-Public Use
  Company Number: FR-ABBOTT-12P-056-0894162-00

PATIENT
  Age: 66 Year
  Sex: Female

DRUGS (2)
  1. COKENZEN 16/12.5 [Suspect]
     Indication: HYPERTENSION
     Dosage: 16/12.5 MG
     Route: 048
     Dates: start: 20090101, end: 20110525
  2. FENOFIBRATE [Suspect]
     Indication: DYSLIPIDAEMIA
     Route: 048
     Dates: start: 20110310, end: 20110525

REACTIONS (1)
  - PULMONARY EMBOLISM [None]
